FAERS Safety Report 9605818 (Version 1)
Quarter: 2013Q4

REPORT INFORMATION
  Report Type: Spontaneous
  Country: US (occurrence: US)
  Receive Date: 20131008
  Receipt Date: 20131008
  Transmission Date: 20140711
  Serious: No
  Sender: FDA-Public Use
  Company Number: US-AMGEN-USASP2013055227

PATIENT
  Sex: Male

DRUGS (6)
  1. XGEVA [Suspect]
     Indication: BONE DISORDER
     Route: 065
  2. NEXIUM                             /01479302/ [Concomitant]
  3. VYTORIN [Concomitant]
  4. ASPIRIN [Concomitant]
  5. HERCEPTIN [Concomitant]
     Dosage: UNK UNK, Q3WK
  6. XELODA [Concomitant]
     Dosage: UNK UNK, Q2WK

REACTIONS (3)
  - Palmar-plantar erythrodysaesthesia syndrome [Not Recovered/Not Resolved]
  - Dry skin [Not Recovered/Not Resolved]
  - Skin discolouration [Not Recovered/Not Resolved]
